FAERS Safety Report 6313725-8 (Version None)
Quarter: 2009Q3

REPORT INFORMATION
  Report Type: 
  Country: None (occurrence: None)
  Receive Date: 20090818
  Receipt Date: 20090804
  Transmission Date: 20100115
  Serious: Yes (Life-Threatening, Hospitalization, Other)
  Sender: FDA-Public Use
  Company Number: GB-MYLANLABS-2009S1013844

PATIENT
  Age: 45 Year
  Sex: Female

DRUGS (6)
  1. CITALOPRAM HYDROBROMIDE [Suspect]
     Indication: DEPRESSION
     Route: 048
     Dates: start: 20090624, end: 20090707
  2. CITALOPRAM HYDROBROMIDE [Suspect]
     Route: 048
     Dates: start: 20090501, end: 20090623
  3. CETIRIZINE HCL [Concomitant]
     Indication: DRUG USE FOR UNKNOWN INDICATION
     Route: 048
  4. ACETAMINOPHEN W/ CODEINE [Concomitant]
     Indication: DRUG USE FOR UNKNOWN INDICATION
  5. FLUOXETINE [Concomitant]
     Indication: DEPRESSION
     Route: 048
  6. ZOPICLONE [Concomitant]
     Indication: SLEEP DISORDER
     Route: 048

REACTIONS (1)
  - HEPATORENAL SYNDROME [None]
